FAERS Safety Report 10904818 (Version 1)
Quarter: 2015Q1

REPORT INFORMATION
  Report Type: Spontaneous
  Country: FR (occurrence: FR)
  Receive Date: 20150311
  Receipt Date: 20150311
  Transmission Date: 20150721
  Serious: Yes (Life-Threatening, Hospitalization, Other)
  Sender: FDA-Public Use
  Company Number: FR-ASTRAZENECA-2015SE21295

PATIENT
  Age: 17436 Day
  Sex: Male

DRUGS (9)
  1. VOLTARENE [Concomitant]
     Active Substance: DICLOFENAC SODIUM
  2. INEXIUM [Suspect]
     Active Substance: ESOMEPRAZOLE
     Route: 048
     Dates: end: 201501
  3. PLAQUENIL [Suspect]
     Active Substance: HYDROXYCHLOROQUINE SULFATE
     Indication: RHEUMATOID ARTHRITIS
     Route: 048
     Dates: start: 201407, end: 20150107
  4. INEXIUM [Suspect]
     Active Substance: ESOMEPRAZOLE
     Route: 048
     Dates: start: 201501
  5. PREDNISONE. [Concomitant]
     Active Substance: PREDNISONE
  6. METHOTREXATE (METHOTREXATE SODIUM) [Suspect]
     Active Substance: METHOTREXATE SODIUM
     Indication: RHEUMATOID ARTHRITIS
     Route: 048
     Dates: start: 201407
  7. SALAZOPYRINE [Suspect]
     Active Substance: SULFASALAZINE
     Indication: RHEUMATOID ARTHRITIS
     Route: 048
     Dates: start: 201407, end: 201501
  8. FUMAFER [Concomitant]
     Active Substance: FERROUS FUMARATE
  9. SPECIAFOLDINE [Concomitant]
     Active Substance: FOLIC ACID

REACTIONS (15)
  - Haematemesis [Unknown]
  - Sepsis [Unknown]
  - Diverticulum intestinal [Unknown]
  - Leukopenia [Recovered/Resolved]
  - Melaena [Unknown]
  - Rectal haemorrhage [Unknown]
  - Oropharyngeal pain [Unknown]
  - Infectious colitis [Unknown]
  - Neutropenia [Recovered/Resolved]
  - Bone marrow failure [Unknown]
  - Dysphagia [Unknown]
  - Gastroenteritis [Unknown]
  - Escherichia bacteraemia [Unknown]
  - Decreased appetite [Unknown]
  - Thrombocytopenia [Recovered/Resolved]

NARRATIVE: CASE EVENT DATE: 20150107
